FAERS Safety Report 24940845 (Version 2)
Quarter: 2025Q1

REPORT INFORMATION
  Report Type: Spontaneous
  Country: US (occurrence: US)
  Receive Date: 20250207
  Receipt Date: 20250303
  Transmission Date: 20250409
  Serious: No
  Sender: Haleon PLC
  Company Number: US-HALEON-2226986

PATIENT

DRUGS (1)
  1. ROBITUSSIN NIGHTTIME COUGH DM SOFT CHEWS [Suspect]
     Active Substance: DEXTROMETHORPHAN HYDROBROMIDE\DOXYLAMINE SUCCINATE
     Indication: Product used for unknown indication

REACTIONS (3)
  - Dysgeusia [Unknown]
  - Expired product administered [Unknown]
  - Product complaint [Unknown]
